FAERS Safety Report 8411621-3 (Version None)
Quarter: 2012Q2

REPORT INFORMATION
  Report Type: 
  Country: None (occurrence: None)
  Receive Date: 20120531
  Receipt Date: 20120531
  Transmission Date: 20120825
  Serious: No
  Sender: FDA-Public Use
  Company Number: None

PATIENT
  Sex: Female
  Weight: 76.2043 kg

DRUGS (1)
  1. MAGNEVIST [Suspect]
     Indication: BRAIN NEOPLASM
     Dosage: 15 ML X1 IV
     Route: 042
     Dates: start: 20120424

REACTIONS (1)
  - URTICARIA [None]
